FAERS Safety Report 5995783-3 (Version None)
Quarter: 2008Q4

REPORT INFORMATION
  Report Type: 
  Country: None (occurrence: None)
  Receive Date: 20081212
  Receipt Date: 20081002
  Transmission Date: 20090506
  Serious: No
  Sender: FDA-Public Use
  Company Number: US-ABBOTT-08P-163-0479621-00

PATIENT
  Sex: Female
  Weight: 86.26 kg

DRUGS (5)
  1. HUMIRA [Suspect]
     Indication: PSORIATIC ARTHROPATHY
     Dates: start: 20070801, end: 20080908
  2. MSM HERBAL [Concomitant]
     Indication: DRUG USE FOR UNKNOWN INDICATION
     Route: 048
  3. OMEGA [Concomitant]
     Indication: DRUG USE FOR UNKNOWN INDICATION
     Route: 048
  4. CALCIUM [Concomitant]
     Indication: DRUG USE FOR UNKNOWN INDICATION
     Route: 048
  5. OXAPROZIN [Concomitant]
     Indication: BREAKTHROUGH PAIN
     Route: 048

REACTIONS (7)
  - EPSTEIN-BARR VIRUS INFECTION [None]
  - FATIGUE [None]
  - LYMPHADENOPATHY [None]
  - SKIN DISORDER [None]
  - STAPHYLOCOCCAL INFECTION [None]
  - VAGINAL ABSCESS [None]
  - WEIGHT INCREASED [None]
